FAERS Safety Report 22526638 (Version 1)
Quarter: 2023Q2

REPORT INFORMATION
  Report Type: Report from Study
  Country: CN (occurrence: CN)
  Receive Date: 20230606
  Receipt Date: 20230606
  Transmission Date: 20230722
  Serious: Yes (Hospitalization)
  Sender: FDA-Public Use
  Company Number: CN-ANTENGENE KOREA-20230501705

PATIENT
  Age: 60 Year
  Sex: Female

DRUGS (9)
  1. SELINEXOR [Suspect]
     Active Substance: SELINEXOR
     Indication: Plasma cell myeloma
     Dosage: 100 MG, SINGLE
     Route: 048
     Dates: start: 20230213, end: 20230213
  2. SELINEXOR [Suspect]
     Active Substance: SELINEXOR
     Dosage: 100 MG, SINGLE
     Route: 048
     Dates: start: 20230220, end: 20230220
  3. SELINEXOR [Suspect]
     Active Substance: SELINEXOR
     Dosage: 80 MG, SINGLE
     Route: 048
     Dates: start: 20230227, end: 20230227
  4. CYCLOPHOSPHAMIDE [Suspect]
     Active Substance: CYCLOPHOSPHAMIDE
     Indication: Plasma cell myeloma
     Dosage: 450 MG, SINGLE
     Dates: start: 20230213, end: 20230213
  5. CYCLOPHOSPHAMIDE [Suspect]
     Active Substance: CYCLOPHOSPHAMIDE
     Dosage: 300 MG, SINGLE
     Route: 048
     Dates: start: 20230220, end: 20230220
  6. CYCLOPHOSPHAMIDE [Suspect]
     Active Substance: CYCLOPHOSPHAMIDE
     Dosage: 300 MG, SINGLE
     Route: 048
     Dates: start: 20230227, end: 20230227
  7. DEXAMETHASONE [Suspect]
     Active Substance: DEXAMETHASONE
     Indication: Plasma cell myeloma
     Dosage: 200 MG, SINGLE
     Route: 048
     Dates: start: 20230213, end: 20230213
  8. DEXAMETHASONE [Suspect]
     Active Substance: DEXAMETHASONE
     Dosage: 20 MG, SINGLE
     Route: 048
     Dates: start: 20230220, end: 20230220
  9. DEXAMETHASONE [Suspect]
     Active Substance: DEXAMETHASONE
     Dosage: 20 MG, SINGLE
     Route: 048
     Dates: start: 20230227, end: 20230227

REACTIONS (1)
  - Pyrexia [Recovered/Resolved]

NARRATIVE: CASE EVENT DATE: 20230308
